FAERS Safety Report 7042648-4 (Version None)
Quarter: 2010Q4

REPORT INFORMATION
  Report Type: 
  Country: None (occurrence: None)
  Receive Date: 20101013
  Receipt Date: 20100405
  Transmission Date: 20110411
  Serious: No
  Sender: FDA-Public Use
  Company Number: US-ASTRAZENECA-2010SE14781

PATIENT
  Sex: Female

DRUGS (3)
  1. SYMBICORT [Suspect]
     Indication: CHRONIC OBSTRUCTIVE PULMONARY DISEASE
     Dosage: 320 UG TOTAL DAILY DOSE TWO TIMES A DAY
     Route: 055
     Dates: start: 20100401
  2. LEVOXYL [Interacting]
     Indication: THYROID DISORDER
  3. PROVENTIL [Concomitant]

REACTIONS (4)
  - ARTHRITIS [None]
  - DRUG INTERACTION [None]
  - EYE DISORDER [None]
  - THERAPEUTIC RESPONSE UNEXPECTED [None]
